FAERS Safety Report 5733902-4 (Version None)
Quarter: 2008Q2

REPORT INFORMATION
  Report Type: 
  Country: None (occurrence: None)
  Receive Date: 20080509
  Receipt Date: 20080429
  Transmission Date: 20081010
  Serious: Yes (Other)
  Sender: FDA-Public Use
  Company Number: CL-PFIZER INC-2008037275

PATIENT
  Sex: Female

DRUGS (4)
  1. LYRICA [Suspect]
     Indication: SCIATICA
  2. AMITRIPTLINE HCL [Concomitant]
  3. CLONAZEPAM [Concomitant]
  4. ALL OTHER THERAPEUTIC PRODUCTS [Concomitant]

REACTIONS (2)
  - CONVULSION [None]
  - ERYTHEMA [None]
